FAERS Safety Report 9539949 (Version 2)
Quarter: 2013Q3

REPORT INFORMATION
  Report Type: Spontaneous
  Country: US (occurrence: US)
  Receive Date: 20130920
  Receipt Date: 20130920
  Transmission Date: 20140515
  Serious: No
  Sender: FDA-Public Use
  Company Number: US-PURDUE-USA-2011-0075684

PATIENT
  Age: 55 Year
  Sex: Female
  Weight: 68 kg

DRUGS (2)
  1. DILAUDID TABLET [Suspect]
     Indication: SURGERY
     Dosage: 2 MG, BID
     Dates: start: 20110705
  2. DILAUDID TABLET [Suspect]
     Dosage: 4 MG, DAILY

REACTIONS (2)
  - Skin burning sensation [Unknown]
  - Rash pruritic [Unknown]
